FAERS Safety Report 11374684 (Version 1)
Quarter: 2015Q3

REPORT INFORMATION
  Report Type: Spontaneous
  Country: US (occurrence: None)
  Receive Date: 20150812
  Receipt Date: 20150812
  Transmission Date: 20151125
  Serious: No
  Sender: FDA-Public Use
  Company Number: None

PATIENT
  Sex: Male

DRUGS (1)
  1. SUTENT [Suspect]
     Active Substance: SUNITINIB MALATE
     Indication: RENAL CANCER
     Dosage: 50 MG  DAILY X 4 WEEKS ORAL
     Route: 048
     Dates: start: 20150227

REACTIONS (3)
  - Diarrhoea [None]
  - Fatigue [None]
  - Rash [None]
